FAERS Safety Report 20761771 (Version 2)
Quarter: 2022Q2

REPORT INFORMATION
  Report Type: Spontaneous
  Country: BE (occurrence: BE)
  Receive Date: 20220428
  Receipt Date: 20220504
  Transmission Date: 20220721
  Serious: Yes (Death, Other)
  Sender: FDA-Public Use
  Company Number: BE-ABBVIE-22K-013-4352165-00

PATIENT

DRUGS (12)
  1. SEVOFLURANE [Suspect]
     Active Substance: SEVOFLURANE
     Indication: Sedative therapy
     Dosage: END-TIDAL CONCENTRATION OF 1% VOL AND INJECTION RATE OF 6 TO 10 ML/H
     Route: 055
     Dates: start: 2020
  2. SUFENTANIL [Concomitant]
     Active Substance: SUFENTANIL
     Indication: Sedation
     Dosage: 5 MICROGRAM/HR
     Route: 042
     Dates: start: 2020, end: 2020
  3. SUFENTANIL [Concomitant]
     Active Substance: SUFENTANIL
     Dosage: UNK
     Route: 042
     Dates: start: 2020, end: 2020
  4. PROPOFOL [Concomitant]
     Active Substance: PROPOFOL
     Indication: Sedation
     Dosage: 4 DOSAGE FORM
     Route: 042
     Dates: start: 2020, end: 2020
  5. PROPOFOL [Concomitant]
     Active Substance: PROPOFOL
     Dosage: UNK
     Route: 065
     Dates: start: 2020, end: 2020
  6. MIDAZOLAM [Concomitant]
     Active Substance: MIDAZOLAM
     Indication: Sedation
     Dosage: 0.15 DOSAGE FORM
     Route: 042
     Dates: start: 2020, end: 2020
  7. MIDAZOLAM [Concomitant]
     Active Substance: MIDAZOLAM
     Dosage: UNK
     Route: 042
     Dates: start: 2020, end: 2020
  8. KETAMINE [Concomitant]
     Active Substance: KETAMINE
     Indication: Sedation
     Dosage: UNK
     Route: 042
     Dates: start: 2020, end: 2020
  9. KETAMINE [Concomitant]
     Active Substance: KETAMINE
     Dosage: 0.8 DOSAGE FORM
     Route: 042
  10. NITRIC OXIDE [Concomitant]
     Active Substance: NITRIC OXIDE
     Indication: Product used for unknown indication
     Dosage: UNK
     Route: 055
  11. CLONIDINE [Concomitant]
     Active Substance: CLONIDINE
     Indication: Sedation
     Dosage: UNK
     Route: 042
  12. CISATRACURIUM [Concomitant]
     Active Substance: CISATRACURIUM
     Indication: Neuromuscular blockade
     Dosage: INITIAL SEDATIVE DRUG REGIMEN
     Route: 065

REACTIONS (3)
  - Nephrogenic diabetes insipidus [Fatal]
  - Acquired gene mutation [Fatal]
  - Off label use [Unknown]

NARRATIVE: CASE EVENT DATE: 20200101
